FAERS Safety Report 24387574 (Version 1)
Quarter: 2024Q4

REPORT INFORMATION
  Report Type: Spontaneous
  Country: US (occurrence: None)
  Receive Date: 20241001
  Receipt Date: 20241001
  Transmission Date: 20250115
  Serious: Yes (Hospitalization)
  Sender: Public
  Company Number: None

PATIENT
  Age: 74 Year
  Sex: Male
  Weight: 112 kg

DRUGS (2)
  1. WARFARIN SODIUM [Suspect]
     Active Substance: WARFARIN SODIUM
     Indication: Atrial fibrillation
     Dosage: 5.00 MG DAILY ORAL
     Route: 048
     Dates: start: 20240119
  2. ENOXAPARIN [Suspect]
     Active Substance: ENOXAPARIN
     Indication: Atrial fibrillation
     Dosage: 120.00 MG TWICE A DAY SUBCUTANEOUS
     Route: 058
     Dates: start: 20240119

REACTIONS (7)
  - Anaemia [None]
  - Haemorrhage [None]
  - Chest pain [None]
  - Polyp [None]
  - Gastritis [None]
  - Diverticulum intestinal [None]
  - Duodenal ulcer [None]

NARRATIVE: CASE EVENT DATE: 20240206
